FAERS Safety Report 4292128-4 (Version None)
Quarter: 2004Q1

REPORT INFORMATION
  Report Type: 
  Country: None (occurrence: None)
  Receive Date: 20040211
  Receipt Date: 20031211
  Transmission Date: 20041129
  Serious: No
  Sender: FDA-Public Use
  Company Number: US-GLAXOSMITHKLINE-A0442771A

PATIENT
  Age: 2 Year
  Sex: Male

DRUGS (3)
  1. LAMICTAL [Suspect]
     Dosage: 125MG PER DAY
     Route: 048
  2. KLONOPIN [Concomitant]
  3. UNKNOWN MEDICATION [Concomitant]

REACTIONS (1)
  - STRABISMUS [None]
